FAERS Safety Report 8346012-7 (Version None)
Quarter: 2012Q2

REPORT INFORMATION
  Report Type: 
  Country: None (occurrence: None)
  Receive Date: 20120509
  Receipt Date: 20120501
  Transmission Date: 20120825
  Serious: No
  Sender: FDA-Public Use
  Company Number: US-PFIZER INC-2012060133

PATIENT
  Sex: Female
  Weight: 54.422 kg

DRUGS (4)
  1. LISINOPRIL [Concomitant]
     Indication: BLOOD PRESSURE ABNORMAL
     Dosage: 5 MG, DAILY
  2. TOVIAZ [Suspect]
     Indication: HYPERTONIC BLADDER
     Dosage: 4 MG, UNK
     Dates: start: 20120312
  3. TOVIAZ [Suspect]
     Indication: URINARY TRACT INFECTION
     Dosage: 8 MG, UNK
     Dates: start: 20120302, end: 20120311
  4. LORAZEPAM [Concomitant]
     Indication: SLEEP DISORDER
     Dosage: 1 MG, DAILY

REACTIONS (9)
  - ABDOMINAL PAIN UPPER [None]
  - MUSCLE SPASMS [None]
  - ABDOMINAL PAIN [None]
  - DYSPEPSIA [None]
  - VOMITING [None]
  - CONSTIPATION [None]
  - POLLAKIURIA [None]
  - ABDOMINAL DISCOMFORT [None]
  - NAUSEA [None]
